FAERS Safety Report 8119535-3 (Version None)
Quarter: 2012Q1

REPORT INFORMATION
  Report Type: 
  Country: None (occurrence: None)
  Receive Date: 20120207
  Receipt Date: 20120126
  Transmission Date: 20120608
  Serious: Yes (Hospitalization, Other)
  Sender: FDA-Public Use
  Company Number: PHFR2011GB04324

PATIENT
  Sex: Female

DRUGS (7)
  1. SIMVASTATIN [Concomitant]
     Indication: HYPERCHOLESTEROLAEMIA
     Dosage: 40 MG, UNK
     Route: 048
  2. OMEPRAZOLE [Concomitant]
     Indication: GASTRITIS
     Dosage: 20 MG, UNK
     Route: 048
  3. SODIUM BICARBONATE [Concomitant]
     Indication: RENAL FAILURE
     Dosage: 500 MG, UNK
     Route: 048
     Dates: end: 20111001
  4. LEVOTHYROXINE SODIUM [Concomitant]
     Indication: HYPOTHYROIDISM
     Dosage: 25 MG
     Route: 048
     Dates: end: 20110801
  5. LITHIUM CARBONATE [Suspect]
     Indication: SCHIZOAFFECTIVE DISORDER
     Dosage: 600 MG, UNK
     Route: 048
     Dates: end: 20110801
  6. CLOZARIL [Suspect]
     Indication: SCHIZOAFFECTIVE DISORDER
     Dosage: 500 MG, DAILY
     Route: 048
     Dates: start: 20000301, end: 20110717
  7. METFORMIN HCL [Concomitant]
     Indication: DIABETES MELLITUS
     Dosage: 1000 MG, BID
     Route: 048
     Dates: start: 20090201, end: 20111001

REACTIONS (9)
  - MENTAL IMPAIRMENT [None]
  - RENAL FAILURE ACUTE [None]
  - LOWER RESPIRATORY TRACT INFECTION [None]
  - TYPE 2 DIABETES MELLITUS [None]
  - PNEUMONIA [None]
  - HYPOTHYROIDISM [None]
  - RENAL FAILURE CHRONIC [None]
  - GENERAL PHYSICAL CONDITION ABNORMAL [None]
  - PERNICIOUS ANAEMIA [None]
